FAERS Safety Report 8216247-2 (Version None)
Quarter: 2012Q1

REPORT INFORMATION
  Report Type: 
  Country: None (occurrence: None)
  Receive Date: 20120229
  Receipt Date: 20110714
  Transmission Date: 20120608
  Serious: Yes (Hospitalization)
  Sender: FDA-Public Use
  Company Number: PHHY2011US63527

PATIENT
  Age: 45 Year
  Sex: Male

DRUGS (1)
  1. NEORAL [Suspect]
     Dosage: 25 MG, BID, ORAL, 100 MG, QD, ORAL
     Route: 048

REACTIONS (2)
  - ASTHENIA [None]
  - FATIGUE [None]
